FAERS Safety Report 8516772-0 (Version None)
Quarter: 2012Q3

REPORT INFORMATION
  Report Type: 
  Country: None (occurrence: None)
  Receive Date: 20120718
  Receipt Date: 20120713
  Transmission Date: 20120928
  Serious: Yes (Other)
  Sender: FDA-Public Use
  Company Number: US-AMGEN-USASP2012043656

PATIENT
  Sex: Female

DRUGS (1)
  1. ENBREL [Suspect]
     Indication: RHEUMATOID ARTHRITIS
     Dosage: UNK
     Dates: start: 19990101

REACTIONS (8)
  - ABASIA [None]
  - DEPRESSED MOOD [None]
  - MENTAL DISORDER [None]
  - PAIN [None]
  - RHEUMATOID ARTHRITIS [None]
  - ECONOMIC PROBLEM [None]
  - SURGERY [None]
  - GAIT DISTURBANCE [None]
